FAERS Safety Report 16757196 (Version 6)
Quarter: 2022Q4

REPORT INFORMATION
  Report Type: Spontaneous
  Country: JP (occurrence: JP)
  Receive Date: 20190829
  Receipt Date: 20221128
  Transmission Date: 20230113
  Serious: Yes (Hospitalization)
  Sender: FDA-Public Use
  Company Number: JP-SANOFI-2019SA238045

PATIENT
  Age: 4 Year
  Sex: Female
  Weight: 13.7 kg

DRUGS (15)
  1. SABRIL [Suspect]
     Active Substance: VIGABATRIN
     Indication: Infantile spasms
     Dosage: DAILY DOSE: 1050 MG (75 MG/KG/DAY), BID
     Route: 048
     Dates: start: 20190208, end: 20190212
  2. SABRIL [Suspect]
     Active Substance: VIGABATRIN
     Dosage: DAILY DOSE: 700 MG (50 MG/KG/DAY), BID
     Route: 048
     Dates: start: 20190201, end: 20190207
  3. SABRIL [Suspect]
     Active Substance: VIGABATRIN
     Dosage: UNKNOWN, UNITS: MG
     Route: 048
  4. VALPROATE SODIUM [Concomitant]
     Active Substance: VALPROATE SODIUM
     Indication: Product used for unknown indication
     Dosage: 350 MG, QD
     Route: 048
  5. LACOSAMIDE [Concomitant]
     Active Substance: LACOSAMIDE
     Indication: Infantile spasms
     Dosage: 50 MG, QD
     Route: 048
     Dates: start: 201812
  6. LAMOTRIGINE [Concomitant]
     Active Substance: LAMOTRIGINE
     Indication: Product used for unknown indication
     Dosage: 10 MG, QD
     Route: 048
  7. SCOPOLIA SPP. [Concomitant]
     Indication: Product used for unknown indication
     Dosage: 45 MG, QD
     Route: 048
  8. XYZAL [Concomitant]
     Active Substance: LEVOCETIRIZINE DIHYDROCHLORIDE
     Indication: Product used for unknown indication
     Dosage: 2.5 MG, QD
     Route: 048
  9. PRANLUKAST [Concomitant]
     Active Substance: PRANLUKAST
     Indication: Product used for unknown indication
     Dosage: 70 MG, QD
     Route: 048
  10. CARBOCYSTEINE [Concomitant]
     Active Substance: CARBOCYSTEINE
     Indication: Product used for unknown indication
     Dosage: 200 MG, QD
     Route: 048
  11. AMBROXOL HYDROCHLORIDE [Concomitant]
     Active Substance: AMBROXOL HYDROCHLORIDE
     Indication: Product used for unknown indication
     Dosage: 6 MG, QD
     Route: 048
  12. VITAMIN B6 [Concomitant]
     Active Substance: PYRIDOXINE HYDROCHLORIDE
     Indication: Product used for unknown indication
     Route: 065
  13. TOPIRAMATE [Concomitant]
     Active Substance: TOPIRAMATE
     Indication: Product used for unknown indication
     Route: 065
  14. PERAMPANEL [Concomitant]
     Active Substance: PERAMPANEL
     Indication: Product used for unknown indication
     Route: 065
  15. ACTH [Concomitant]
     Active Substance: CORTICOTROPIN
     Indication: Product used for unknown indication
     Route: 065

REACTIONS (4)
  - Increased bronchial secretion [Recovered/Resolved]
  - Agitation [Recovered/Resolved]
  - Insomnia [Recovered/Resolved]
  - Secretion discharge [Unknown]

NARRATIVE: CASE EVENT DATE: 20190201
